FAERS Safety Report 4316004-3 (Version None)
Quarter: 2004Q1

REPORT INFORMATION
  Report Type: 
  Country: None (occurrence: None)
  Receive Date: 20040310
  Receipt Date: 20040224
  Transmission Date: 20041129
  Serious: Yes (Hospitalization)
  Sender: FDA-Public Use
  Company Number: 04P-056-0251669-00

PATIENT
  Age: 46 Year
  Sex: Male

DRUGS (3)
  1. VALPROATE SODIUM [Suspect]
     Indication: EPILEPSY
     Dosage: 15 GM, ONCE, ORAL
     Route: 048
     Dates: start: 20040109, end: 20040109
  2. VALPROIC ACID [Suspect]
     Indication: EPILEPSY
     Dosage: 8 GM, ONCE, ORAL
     Route: 048
     Dates: start: 20040109, end: 20040109
  3. PHENOBARBITAL TAB [Suspect]
     Indication: EPILEPSY
     Dosage: 1 DOSAGE FORMS, 1 IN 1 D, ORAL
     Route: 048
     Dates: end: 20040109

REACTIONS (7)
  - ANTICONVULSANT DRUG LEVEL INCREASED [None]
  - DEPRESSED LEVEL OF CONSCIOUSNESS [None]
  - HYPERAMMONAEMIA [None]
  - HYPERLACTACIDAEMIA [None]
  - INTENTIONAL OVERDOSE [None]
  - SOMNOLENCE [None]
  - SUICIDE ATTEMPT [None]
